FAERS Safety Report 15096749 (Version 2)
Quarter: 2018Q3

REPORT INFORMATION
  Report Type: Spontaneous
  Country: US (occurrence: US)
  Receive Date: 20180702
  Receipt Date: 20180920
  Transmission Date: 20181010
  Serious: Yes (Hospitalization)
  Sender: FDA-Public Use
  Company Number: US-IGSA-SR10006110

PATIENT
  Age: 80 Year
  Sex: Male
  Weight: 84 kg

DRUGS (11)
  1. ASPIRIN                            /00002701/ [Concomitant]
     Active Substance: ASPIRIN
     Dosage: 81 MG, QD
  2. FENOFIBRATE. [Concomitant]
     Active Substance: FENOFIBRATE
  3. PREDNISONE. [Concomitant]
     Active Substance: PREDNISONE
  4. LISINOPRIL. [Concomitant]
     Active Substance: LISINOPRIL
  5. ROSUVASTATIN. [Concomitant]
     Active Substance: ROSUVASTATIN
  6. GAMUNEX?C [Suspect]
     Active Substance: HUMAN IMMUNOGLOBULIN G
     Indication: MYASTHENIA GRAVIS
     Dosage: 30 G, QD
     Route: 042
     Dates: start: 20180308, end: 20180312
  7. DILTIAZEM. [Concomitant]
     Active Substance: DILTIAZEM
  8. HYDROCHLOROTHIAZIDE. [Concomitant]
     Active Substance: HYDROCHLOROTHIAZIDE
  9. GABAPENTIN. [Concomitant]
     Active Substance: GABAPENTIN
  10. MYCOPHENOLATE [Concomitant]
     Active Substance: MYCOPHENOLIC ACID
  11. GAMUNEX?C [Suspect]
     Active Substance: HUMAN IMMUNOGLOBULIN G
     Dosage: UNK

REACTIONS (1)
  - Pulmonary embolism [Unknown]

NARRATIVE: CASE EVENT DATE: 20180315
